FAERS Safety Report 9698276 (Version 1)
Quarter: 2013Q4

REPORT INFORMATION
  Report Type: Spontaneous
  Country: BR (occurrence: BR)
  Receive Date: 20131120
  Receipt Date: 20131120
  Transmission Date: 20140711
  Serious: Yes (Other)
  Sender: FDA-Public Use
  Company Number: BR-GLAXOSMITHKLINE-A1049882A

PATIENT
  Sex: Female

DRUGS (1)
  1. NIQUITIN 21MG [Suspect]
     Indication: SMOKING CESSATION THERAPY
     Route: 062

REACTIONS (3)
  - Bipolar disorder [Unknown]
  - Malaise [Unknown]
  - Lung disorder [Unknown]
